FAERS Safety Report 4821945-4 (Version None)
Quarter: 2005Q4

REPORT INFORMATION
  Report Type: 
  Country: None (occurrence: None)
  Receive Date: 20051103
  Receipt Date: 20051024
  Transmission Date: 20060501
  Serious: Yes (Death)
  Sender: FDA-Public Use
  Company Number: MK200510-0224-1

PATIENT
  Age: 79 Year
  Sex: Female

DRUGS (6)
  1. TRAMADOL HYDROCLORIDE [Suspect]
     Indication: SCIATICA
  2. AMITRIPTYLINE HCL [Suspect]
     Indication: DEPRESSION
     Dosage: 75 MG, QD, PO
     Route: 048
  3. ROFECOXIB [Concomitant]
  4. MORPHINE [Concomitant]
  5. COPROXAMOL [Concomitant]
  6. UNSPECIFIED ANTIBIOTICS [Concomitant]

REACTIONS (14)
  - BLOOD POTASSIUM DECREASED [None]
  - BRADYCARDIA [None]
  - COMA [None]
  - CONFUSIONAL STATE [None]
  - CONVULSION [None]
  - DELIRIUM [None]
  - HALLUCINATION [None]
  - MALAISE [None]
  - METABOLIC ACIDOSIS [None]
  - RESPIRATORY DEPRESSION [None]
  - SEPSIS [None]
  - SEROTONIN SYNDROME [None]
  - SHOCK [None]
  - THERAPY NON-RESPONDER [None]
